FAERS Safety Report 17390908 (Version 1)
Quarter: 2020Q1

REPORT INFORMATION
  Report Type: Spontaneous
  Country: US (occurrence: US)
  Receive Date: 20200207
  Receipt Date: 20200207
  Transmission Date: 20200409
  Serious: No
  Sender: FDA-Public Use
  Company Number: NVSC2020US031249

PATIENT
  Sex: Female
  Weight: 62.6 kg

DRUGS (1)
  1. CEFTRIAXONE. [Suspect]
     Active Substance: CEFTRIAXONE
     Indication: VAGINAL INFECTION
     Dosage: 250 MG UNKNOWN
     Route: 030
     Dates: start: 20200127, end: 20200127

REACTIONS (1)
  - Product preparation error [Unknown]
